FAERS Safety Report 8397394-1 (Version None)
Quarter: 2012Q2

REPORT INFORMATION
  Report Type: 
  Country: None (occurrence: None)
  Receive Date: 20120531
  Receipt Date: 20120525
  Transmission Date: 20120825
  Serious: No
  Sender: FDA-Public Use
  Company Number: US-BIOGENIDEC-2012BI018727

PATIENT
  Sex: Female

DRUGS (2)
  1. TYSABRI [Suspect]
     Route: 042
     Dates: start: 20110706
  2. TYSABRI [Suspect]
     Indication: MULTIPLE SCLEROSIS
     Route: 042
     Dates: start: 20061129, end: 20100113

REACTIONS (5)
  - URINARY INCONTINENCE [None]
  - LOSS OF CONSCIOUSNESS [None]
  - DYSPNOEA [None]
  - ASTHENIA [None]
  - VISUAL IMPAIRMENT [None]
